FAERS Safety Report 4555013-6 (Version None)
Quarter: 2004Q4

REPORT INFORMATION
  Report Type: 
  Country: None (occurrence: None)
  Receive Date: 20041217
  Receipt Date: 20040826
  Transmission Date: 20050328
  Serious: No
  Sender: FDA-Public Use
  Company Number: 2004-BP-07379BP(0)

PATIENT
  Age: 69 Year
  Sex: Female

DRUGS (13)
  1. SPIRIVA [Suspect]
     Indication: CHRONIC OBSTRUCTIVE AIRWAYS DISEASE
     Dosage: 18 MCG (19 MCG), IH
     Dates: start: 20040101, end: 20040101
  2. VENTOLIN HFA (SALBUTAMOL) [Concomitant]
  3. ALBUTEROL SULFATE NEBULIZER (SALBUTMAOL SULFATE) [Concomitant]
  4. ATROVENT [Concomitant]
  5. AEROBID [Concomitant]
  6. ALLEGRA [Concomitant]
  7. EXTEX-PSE [Concomitant]
  8. HUMABID LA [Concomitant]
  9. THYROID TAB [Concomitant]
  10. XANTAX [Concomitant]
  11. ACTONEL [Concomitant]
  12. MIDRIN (MIDRID) [Concomitant]
  13. ATACAND [Concomitant]

REACTIONS (4)
  - DRY MOUTH [None]
  - DYSPNOEA [None]
  - SINUS HEADACHE [None]
  - THROAT IRRITATION [None]
